FAERS Safety Report 24981454 (Version 4)
Quarter: 2025Q1

REPORT INFORMATION
  Report Type: Spontaneous
  Country: US (occurrence: US)
  Receive Date: 20250218
  Receipt Date: 20250313
  Transmission Date: 20250409
  Serious: Yes (Hospitalization)
  Sender: VERTEX
  Company Number: US-VERTEX PHARMACEUTICALS-2025-002519

PATIENT
  Age: 19 Year
  Sex: Female

DRUGS (2)
  1. TRIKAFTA [Suspect]
     Active Substance: ELEXACAFTOR\IVACAFTOR\TEZACAFTOR
     Indication: Cystic fibrosis
     Route: 048
  2. Adek [Concomitant]

REACTIONS (7)
  - Stenotrophomonas maltophilia pneumonia [Unknown]
  - Mental disorder [Unknown]
  - Gallbladder disorder [Not Recovered/Not Resolved]
  - Arthritis [Not Recovered/Not Resolved]
  - Weight gain poor [Not Recovered/Not Resolved]
  - Hypovitaminosis [Not Recovered/Not Resolved]
  - Tooth loss [Unknown]

NARRATIVE: CASE EVENT DATE: 20190101
